FAERS Safety Report 8191133-5 (Version None)
Quarter: 2012Q1

REPORT INFORMATION
  Report Type: 
  Country: None (occurrence: None)
  Receive Date: 20120307
  Receipt Date: 20120229
  Transmission Date: 20120608
  Serious: Yes (Other)
  Sender: FDA-Public Use
  Company Number: ZA-GLAXOSMITHKLINE-B0785092A

PATIENT

DRUGS (2)
  1. WELLBUTRIN [Suspect]
     Indication: DEPRESSION
     Route: 065
  2. CONCERTA [Concomitant]

REACTIONS (2)
  - DYSGRAPHIA [None]
  - DISTURBANCE IN ATTENTION [None]
